FAERS Safety Report 9902903 (Version 1)
Quarter: 2014Q1

REPORT INFORMATION
  Report Type: Spontaneous
  Country: JP (occurrence: JP)
  Receive Date: 20140217
  Receipt Date: 20140217
  Transmission Date: 20141002
  Serious: Yes (Hospitalization)
  Sender: FDA-Public Use
  Company Number: PHJP2014JP000518

PATIENT
  Age: 39 Year
  Sex: Female

DRUGS (9)
  1. CARBAMAZEPINE [Suspect]
     Route: 048
  2. MEXILETINE [Suspect]
  3. RABBIT VACCINIA EXTRACT [Suspect]
  4. DICLOFENAC [Suspect]
     Indication: PAIN
     Route: 048
  5. CODEINE PHOSPHATE [Suspect]
     Indication: PAIN
  6. BUPRENORPHINE [Suspect]
     Indication: PAIN
  7. PENTAZOCINE [Suspect]
  8. TRYPTANOL//AMITRIPTYLINE HYDROCHLORIDE [Concomitant]
  9. MORPHINE [Concomitant]
     Dosage: 340 MG, PER DAY
     Route: 048

REACTIONS (2)
  - Platelet count decreased [Unknown]
  - Drug ineffective [Unknown]
